FAERS Safety Report 6446456-4 (Version None)
Quarter: 2009Q4

REPORT INFORMATION
  Report Type: 
  Country: None (occurrence: None)
  Receive Date: 20091119
  Receipt Date: 20091111
  Transmission Date: 20100525
  Serious: Yes (Hospitalization)
  Sender: FDA-Public Use
  Company Number: PHHO2009DK11040

PATIENT
  Sex: Male
  Weight: 65 kg

DRUGS (2)
  1. RAD 666 RAD+TAB [Suspect]
     Indication: RENAL TRANSPLANT
     Dosage: 3 MG, BID
     Route: 048
     Dates: start: 20090402
  2. RAD 666 RAD+TAB [Suspect]
     Dosage: 2.5 MG, BID
     Route: 048

REACTIONS (3)
  - ANAEMIA [None]
  - APHTHOUS STOMATITIS [None]
  - PYREXIA [None]
